FAERS Safety Report 4602777-9 (Version None)
Quarter: 2005Q1

REPORT INFORMATION
  Report Type: 
  Country: None (occurrence: None)
  Receive Date: 20050309
  Receipt Date: 20050224
  Transmission Date: 20050727
  Serious: Yes (Hospitalization)
  Sender: FDA-Public Use
  Company Number: JP-JNJFOC-20050201773

PATIENT
  Sex: Male

DRUGS (2)
  1. ITRIZOLE [Suspect]
     Indication: ONYCHOMYCOSIS
     Route: 049
     Dates: start: 20050125, end: 20050131
  2. MECOBALAMIN [Concomitant]
     Route: 049
     Dates: start: 20030101

REACTIONS (1)
  - ERYTHEMA MULTIFORME [None]
